FAERS Safety Report 24372243 (Version 1)
Quarter: 2024Q3

REPORT INFORMATION
  Report Type: Spontaneous
  Country: US (occurrence: None)
  Receive Date: 20240927
  Receipt Date: 20240927
  Transmission Date: 20241017
  Serious: Yes (Hospitalization)
  Sender: Public
  Company Number: None

PATIENT
  Sex: Male

DRUGS (11)
  1. ESBRIET [Suspect]
     Active Substance: PIRFENIDONE
     Indication: Essential hypertension
     Route: 048
     Dates: start: 20180829
  2. AMOXICILLIN [Concomitant]
     Active Substance: AMOXICILLIN
  3. ATORVASTATIN [Concomitant]
     Active Substance: ATORVASTATIN
  4. CARTIA XT CAP 120/24HR [Concomitant]
  5. FARXIGA [Concomitant]
     Active Substance: DAPAGLIFLOZIN PROPANEDIOL
  6. LOSARTAN POT TAB [Concomitant]
  7. PIRFENIDONE [Concomitant]
     Active Substance: PIRFENIDONE
  8. PREDNISONE [Concomitant]
     Active Substance: PREDNISONE
  9. SERTRALINE [Concomitant]
     Active Substance: SERTRALINE HYDROCHLORIDE
  10. SPIRONOLACTONE [Concomitant]
     Active Substance: SPIRONOLACTONE
  11. TIKOSYN [Concomitant]
     Active Substance: DOFETILIDE

REACTIONS (2)
  - Hospitalisation [None]
  - Intentional dose omission [None]
